FAERS Safety Report 10601504 (Version 1)
Quarter: 2014Q4

REPORT INFORMATION
  Report Type: Spontaneous
  Country: US (occurrence: US)
  Receive Date: 20141124
  Receipt Date: 20141124
  Transmission Date: 20150529
  Serious: Yes (Other)
  Sender: FDA-Public Use
  Company Number: US-TEVA-494828USA

PATIENT
  Sex: Female

DRUGS (3)
  1. MUPIROCIN. [Suspect]
     Active Substance: MUPIROCIN
     Indication: STAPHYLOCOCCAL INFECTION
     Dosage: 4 PERCENT DAILY;
  2. CEFADROXIL. [Concomitant]
     Active Substance: CEFADROXIL
  3. MUPIROCIN. [Suspect]
     Active Substance: MUPIROCIN
     Indication: ECZEMA

REACTIONS (2)
  - Eczema [Unknown]
  - Staphylococcal infection [Unknown]
